FAERS Safety Report 7556526-5 (Version None)
Quarter: 2011Q2

REPORT INFORMATION
  Report Type: 
  Country: None (occurrence: None)
  Receive Date: 20110609
  Receipt Date: 20110606
  Transmission Date: 20111010
  Serious: Yes (Life-Threatening, Hospitalization)
  Sender: FDA-Public Use
  Company Number: 2011SP025996

PATIENT
  Age: 57 Year
  Sex: Male

DRUGS (4)
  1. DEXAMETHASONE [Concomitant]
  2. KEPPRA [Concomitant]
  3. TEMODAL [Suspect]
     Indication: ASTROCYTOMA
     Dosage: ; QD; PO
     Route: 048
     Dates: start: 20110113, end: 20110216
  4. OMEPRAZOLE [Concomitant]

REACTIONS (4)
  - NEOPLASM PROGRESSION [None]
  - PULMONARY EMBOLISM [None]
  - ASTROCYTOMA [None]
  - EMBOLISM [None]
